FAERS Safety Report 4861563-5 (Version None)
Quarter: 2005Q4

REPORT INFORMATION
  Report Type: 
  Country: None (occurrence: None)
  Receive Date: 20051216
  Receipt Date: 20051201
  Transmission Date: 20060501
  Serious: Yes (Life-Threatening)
  Sender: FDA-Public Use
  Company Number: SK200512000252

PATIENT
  Age: 58 Year
  Sex: Female
  Weight: 50 kg

DRUGS (4)
  1. FORTEO [Suspect]
     Dosage: 20 UG, DAILY (1/D), SUBCUTANEOUS
     Route: 058
     Dates: start: 20051124
  2. DUSODRIL (NAFTIDROFURYL OXALATE) [Concomitant]
  3. ANOPYRIN (ACETYLSALICYLIC ACID) [Concomitant]
  4. MIACALCIN [Concomitant]

REACTIONS (3)
  - DIZZINESS [None]
  - DYSPHONIA [None]
  - HYPERSENSITIVITY [None]
